FAERS Safety Report 24422657 (Version 1)
Quarter: 2024Q4

REPORT INFORMATION
  Report Type: Spontaneous
  Country: US (occurrence: US)
  Receive Date: 20241010
  Receipt Date: 20241010
  Transmission Date: 20250114
  Serious: No
  Sender: NOVARTIS
  Company Number: US-002147023-NVSC2024US194458

PATIENT
  Sex: Female

DRUGS (8)
  1. LEQVIO [Suspect]
     Active Substance: INCLISIRAN SODIUM
     Indication: Product used for unknown indication
     Dosage: (FIRST DOSE OF LEQVIO)
     Route: 065
     Dates: start: 20231201
  2. LEQVIO [Suspect]
     Active Substance: INCLISIRAN SODIUM
     Dosage: (SECOND DOSE OF LEQVIO)
     Route: 065
     Dates: start: 20240304
  3. LEQVIO [Suspect]
     Active Substance: INCLISIRAN SODIUM
     Dosage: (THIRD DOSE OF LEQVIO)
     Route: 065
     Dates: start: 20240906
  4. PROGRAF [Concomitant]
     Active Substance: TACROLIMUS
     Indication: Product used for unknown indication
     Dosage: 2 MG, BID
     Route: 065
  5. PREDNISONE [Concomitant]
     Active Substance: PREDNISONE
     Indication: Product used for unknown indication
     Dosage: 5 MG, QD
     Route: 065
  6. LISINOPRIL [Concomitant]
     Active Substance: LISINOPRIL
     Indication: Product used for unknown indication
     Dosage: 20 MG, QD
     Route: 065
  7. FAMOTIDINE [Concomitant]
     Active Substance: FAMOTIDINE
     Indication: Product used for unknown indication
     Dosage: 40 MG, QD
     Route: 065
  8. SYNTHROID [Concomitant]
     Active Substance: LEVOTHYROXINE SODIUM
     Indication: Product used for unknown indication
     Dosage: 88 MCG, QD
     Route: 065

REACTIONS (6)
  - Headache [Unknown]
  - Myalgia [Unknown]
  - Arthralgia [Unknown]
  - Illness [Unknown]
  - Dyspnoea [Unknown]
  - Insomnia [Unknown]
